FAERS Safety Report 18252589 (Version 1)
Quarter: 2020Q3

REPORT INFORMATION
  Report Type: Spontaneous
  Country: US (occurrence: US)
  Receive Date: 20200910
  Receipt Date: 20200910
  Transmission Date: 20201103
  Serious: No
  Sender: FDA-Public Use
  Company Number: US-AMGEN-USASP2020146117

PATIENT
  Age: 61 Year
  Sex: Female

DRUGS (3)
  1. GALCANEZUMAB GNLM [Suspect]
     Active Substance: GALCANEZUMAB-GNLM
     Indication: MIGRAINE WITHOUT AURA
     Dosage: 240 MILLIGRAM (LOADING DOSE)
     Route: 065
  2. ERENUMAB [Suspect]
     Active Substance: ERENUMAB
     Indication: MIGRAINE WITHOUT AURA
     Dosage: 70 MILLIGRAM, QMO (EVERY 28 DAYS)
     Route: 065
  3. GALCANEZUMAB GNLM [Suspect]
     Active Substance: GALCANEZUMAB-GNLM
     Dosage: 120 MILLIGRAM
     Route: 065

REACTIONS (3)
  - Visual impairment [Recovered/Resolved]
  - Drug ineffective [Unknown]
  - Injection site pain [None]
